FAERS Safety Report 5856326-8 (Version None)
Quarter: 2008Q3

REPORT INFORMATION
  Report Type: 
  Country: None (occurrence: None)
  Receive Date: 20080825
  Receipt Date: 20080818
  Transmission Date: 20090109
  Serious: Yes (Other)
  Sender: FDA-Public Use
  Company Number: US-WYE-H04726008

PATIENT
  Sex: Female
  Weight: 75.1 kg

DRUGS (8)
  1. CONJUGATED ESTROGENS 0.45MG/MEDROXYPROGESTERONE ACETATE 1.5MG [Suspect]
     Indication: MENOPAUSAL SYMPTOMS
     Dosage: 0.45 MG/1.5MG CAPSULE DAILY
     Route: 048
     Dates: start: 20060520, end: 20080502
  2. CONJUGATED ESTROGENS 0.45MG/MEDROXYPROGESTERONE ACETATE 1.5MG [Suspect]
     Indication: PROPHYLAXIS
  3. CONJUGATED ESTROGENS 0.45MG/MEDROXYPROGESTERONE ACETATE 1.5MG [Suspect]
     Indication: ENDOMETRIAL HYPERPLASIA
  4. CONJUGATED ESTROGENS 0.45MG/MEDROXYPROGESTERONE ACETATE 1.5MG [Suspect]
     Indication: OSTEOPOROSIS PROPHYLAXIS
  5. ZOLOFT [Concomitant]
     Indication: MAJOR DEPRESSION
     Dosage: UNKNOWN
     Route: 065
     Dates: start: 20080305, end: 20080416
  6. IMODIUM [Concomitant]
     Indication: DIARRHOEA
     Dosage: UNKNOWN
     Route: 065
     Dates: start: 20080201, end: 20080512
  7. LISINOPRIL [Concomitant]
     Indication: HYPERTENSION
     Dosage: 20/12.5 OR 20/25 DAILY
     Route: 048
     Dates: start: 20060305
  8. MULTI-VITAMINS [Concomitant]
     Indication: MEDICAL DIET
     Dosage: UNKNOWN DOSE AND FREQUENCY
     Route: 065
     Dates: start: 20051001

REACTIONS (2)
  - CONDITION AGGRAVATED [None]
  - MAJOR DEPRESSION [None]
